FAERS Safety Report 7964669-7 (Version None)
Quarter: 2011Q4

REPORT INFORMATION
  Report Type: 
  Country: None (occurrence: None)
  Receive Date: 20111208
  Receipt Date: 20111130
  Transmission Date: 20120403
  Serious: Yes (Hospitalization)
  Sender: FDA-Public Use
  Company Number: US-ABBOTT-11P-163-0879774-00

PATIENT
  Sex: Female
  Weight: 79.45 kg

DRUGS (11)
  1. AMBIEN [Concomitant]
     Indication: SLEEP DISORDER THERAPY
  2. HUMIRA [Suspect]
     Indication: PSORIASIS
     Dates: end: 20111101
  3. AMITRIPTYLINE HCL [Concomitant]
     Indication: MUSCLE SPASMS
  4. METHOTREXATE [Concomitant]
     Indication: ANKYLOSING SPONDYLITIS
  5. METHOTREXATE [Concomitant]
     Indication: PSORIASIS
  6. LYRICA [Concomitant]
     Indication: RHEUMATOID ARTHRITIS
  7. ROPINIROLE [Concomitant]
     Indication: MUSCULOSKELETAL DISORDER
  8. METHOTREXATE [Concomitant]
     Indication: RHEUMATOID ARTHRITIS
  9. CYMBALTA [Concomitant]
     Indication: FIBROMYALGIA
  10. HUMIRA [Suspect]
     Indication: ANKYLOSING SPONDYLITIS
  11. HUMIRA [Suspect]
     Indication: RHEUMATOID ARTHRITIS

REACTIONS (3)
  - ARTHROPATHY [None]
  - HEADACHE [None]
  - SPINAL DISORDER [None]
